FAERS Safety Report 11921388 (Version 1)
Quarter: 2016Q1

REPORT INFORMATION
  Report Type: Spontaneous
  Country: US (occurrence: US)
  Receive Date: 20160115
  Receipt Date: 20160115
  Transmission Date: 20160526
  Serious: Yes (Other)
  Sender: FDA-Public Use
  Company Number: US-TEVA-625414USA

PATIENT
  Age: 63 Year
  Sex: Male

DRUGS (2)
  1. INTERLEUKIN-2 [Suspect]
     Active Substance: ALDESLEUKIN
     Indication: MALIGNANT MELANOMA
     Dosage: 7-22 MILLION IU
     Route: 026
  2. IMIQUIMOD. [Suspect]
     Active Substance: IMIQUIMOD
     Indication: MALIGNANT MELANOMA
     Route: 061

REACTIONS (4)
  - Panniculitis [Unknown]
  - Chills [Unknown]
  - Fatigue [Unknown]
  - Chills [Recovered/Resolved]
